FAERS Safety Report 14258332 (Version 1)
Quarter: 2017Q4

REPORT INFORMATION
  Report Type: Spontaneous
  Country: US (occurrence: US)
  Receive Date: 20171206
  Receipt Date: 20171206
  Transmission Date: 20180321
  Serious: No
  Sender: FDA-Public Use
  Company Number: None

PATIENT
  Age: 49 Year
  Sex: Male
  Weight: 103.5 kg

DRUGS (1)
  1. XARELTO [Suspect]
     Active Substance: RIVAROXABAN
     Indication: PULMONARY EMBOLISM
     Dosage: ?          QUANTITY:1 TABLET(S);?
     Route: 048

REACTIONS (8)
  - Palpitations [None]
  - Weight increased [None]
  - Arthralgia [None]
  - Dizziness [None]
  - Fluid retention [None]
  - Back pain [None]
  - Dyspnoea [None]
  - Muscle spasms [None]

NARRATIVE: CASE EVENT DATE: 20171204
